FAERS Safety Report 15262040 (Version 1)
Quarter: 2018Q3

REPORT INFORMATION
  Report Type: Spontaneous
  Country: GB (occurrence: GB)
  Receive Date: 20180809
  Receipt Date: 20180809
  Transmission Date: 20181010
  Serious: Yes (Other)
  Sender: FDA-Public Use
  Company Number: PHHY2018GB068552

PATIENT
  Age: 58 Year
  Sex: Female
  Weight: 79.82 kg

DRUGS (1)
  1. AMLODIPINE [Suspect]
     Active Substance: AMLODIPINE BESYLATE
     Indication: HYPERTENSION
     Route: 048
     Dates: start: 20171107, end: 20180607

REACTIONS (2)
  - Arrhythmia [Recovering/Resolving]
  - Palpitations [Recovering/Resolving]
